FAERS Safety Report 4356792-3 (Version None)
Quarter: 2004Q2

REPORT INFORMATION
  Report Type: 
  Country: None (occurrence: None)
  Receive Date: 20040507
  Receipt Date: 20040503
  Transmission Date: 20050107
  Serious: Yes (Life-Threatening)
  Sender: FDA-Public Use
  Company Number: 200410266BVD

PATIENT
  Sex: Male

DRUGS (4)
  1. AVELOX [Suspect]
     Indication: PNEUMONIA
     Dosage: 400 MG, TOTAL DAILY, INTRAVENOUS
     Route: 042
  2. AVELOX [Suspect]
     Indication: PYREXIA
     Dosage: 400 MG, TOTAL DAILY, INTRAVENOUS
     Route: 042
  3. METHOTREXATE [Concomitant]
  4. SIOFOR [Concomitant]

REACTIONS (6)
  - AGRANULOCYTOSIS [None]
  - DIALYSIS [None]
  - HYPOGLYCAEMIA [None]
  - OSTEONECROSIS [None]
  - PANCYTOPENIA [None]
  - RENAL FAILURE [None]
